FAERS Safety Report 8870355 (Version 1)
Quarter: 2012Q4

REPORT INFORMATION
  Report Type: 
  Country: BR (occurrence: BR)
  Receive Date: 20121029
  Receipt Date: 20121029
  Transmission Date: 20130627
  Serious: Yes (Other)
  Sender: FDA-Public Use
  Company Number: BR-AMGEN-BRASP2012067472

PATIENT
  Age: 44 Year
  Sex: Male
  Weight: 117 kg

DRUGS (3)
  1. ENBREL [Suspect]
     Indication: PSORIASIS
     Dosage: 50 mg, once weekly
     Route: 058
     Dates: start: 201202, end: 201208
  2. ENALAPRIL [Concomitant]
     Indication: HYPERTENSION
     Dosage: strength 25 mg
  3. SIMVASTATIN [Concomitant]
     Indication: BLOOD CHOLESTEROL
     Dosage: UNK

REACTIONS (3)
  - Diabetes mellitus [Unknown]
  - Drug ineffective [Unknown]
  - Skin exfoliation [Unknown]
